FAERS Safety Report 8242663-9 (Version None)
Quarter: 2012Q1

REPORT INFORMATION
  Report Type: 
  Country: None (occurrence: None)
  Receive Date: 20120329
  Receipt Date: 20120322
  Transmission Date: 20120608
  Serious: Yes (Disabling)
  Sender: FDA-Public Use
  Company Number: JP-GE HEALTHCARE MEDICAL DIAGNOSTICS-OSCN-NO-0706S-0267

PATIENT
  Sex: Male
  Weight: 57 kg

DRUGS (17)
  1. DILTIAZEM HYDROCHLORIDE (HERBESSER R) [Concomitant]
     Indication: HYPERTENSION
     Route: 048
  2. OMNISCAN [Suspect]
     Indication: HYDROCEPHALUS
     Route: 042
     Dates: start: 20010712, end: 20010712
  3. MARZULENE-S (LEVOGLUTAMIDE W/SODIUM GUALENATE) [Concomitant]
     Indication: GASTRIC ULCER
     Route: 048
  4. SODIUM CALCIUM [Concomitant]
     Indication: HYPERLIPIDAEMIA
     Route: 048
  5. OMNISCAN [Suspect]
     Route: 042
     Dates: start: 20010808, end: 20010808
  6. OMNISCAN [Suspect]
     Indication: ACOUSTIC NEUROMA
     Route: 042
     Dates: start: 20010125, end: 20010125
  7. LANSOPRAZOLE [Concomitant]
     Indication: GASTRIC ULCER
     Route: 048
  8. OMNISCAN [Suspect]
     Route: 042
     Dates: start: 20050225, end: 20050225
  9. ETHYL ICOSAPENATATE (EPADEL S) [Concomitant]
     Indication: HYPERLIPIDAEMIA
     Route: 048
  10. WARFARIN SODIUM [Concomitant]
     Indication: ATRIAL FIBRILLATION
     Route: 048
  11. OMNISCAN [Suspect]
     Dosage: 11.4 ML (0.2 ML/KG)
     Route: 042
     Dates: start: 20030402, end: 20030402
  12. OMNISCAN [Suspect]
     Dosage: 11.4 ML (0.2 ML/KG)
     Route: 042
     Dates: start: 20031119, end: 20031119
  13. OMNISCAN [Suspect]
     Dosage: 11.4 ML (0.2 ML/KG)
     Route: 042
     Dates: start: 20041117, end: 20041117
  14. ETIZOLAM (DEPAS) [Concomitant]
     Indication: INSOMNIA
     Route: 048
  15. OMNISCAN [Suspect]
     Dosage: 11.4 ML (0.2 ML/KG)
     Route: 042
     Dates: start: 20040519, end: 20040519
  16. ISOSORBIDE DINITRATE (FRANDOL) [Concomitant]
     Indication: ANGINA PECTORIS
     Route: 048
  17. PROHANCE [Concomitant]

REACTIONS (10)
  - GAIT DISTURBANCE [None]
  - SCLEREMA [None]
  - NEPHROGENIC SYSTEMIC FIBROSIS [None]
  - SWELLING [None]
  - SKIN INDURATION [None]
  - BIOPSY SKIN ABNORMAL [None]
  - JOINT STIFFNESS [None]
  - GRIP STRENGTH DECREASED [None]
  - JOINT RANGE OF MOTION DECREASED [None]
  - SKIN LESION [None]
